FAERS Safety Report 10165454 (Version 1)
Quarter: 2014Q2

REPORT INFORMATION
  Report Type: Spontaneous
  Country: US (occurrence: US)
  Receive Date: 20140510
  Receipt Date: 20140510
  Transmission Date: 20141212
  Serious: No
  Sender: FDA-Public Use
  Company Number: US-BRISTOL-MYERS SQUIBB COMPANY-20472544

PATIENT
  Sex: Male
  Weight: 72.56 kg

DRUGS (6)
  1. BYDUREON [Suspect]
     Indication: TYPE 2 DIABETES MELLITUS
     Route: 058
     Dates: start: 201303
  2. ATENOLOL [Concomitant]
  3. LISINOPRIL [Concomitant]
  4. HCTZ [Concomitant]
  5. METFORMIN [Concomitant]
  6. GLIPIZIDE [Concomitant]

REACTIONS (5)
  - Increased appetite [Unknown]
  - Nausea [Unknown]
  - Gastrointestinal pain [Unknown]
  - Weight increased [Unknown]
  - Abdominal discomfort [Unknown]
